FAERS Safety Report 7372418-9 (Version None)
Quarter: 2011Q1

REPORT INFORMATION
  Report Type: 
  Country: None (occurrence: None)
  Receive Date: 20110324
  Receipt Date: 20100503
  Transmission Date: 20110831
  Serious: Yes (Other)
  Sender: FDA-Public Use
  Company Number: PHHY2010DE90855

PATIENT

DRUGS (1)
  1. EXTAVIA [Suspect]
     Dosage: UNK
     Route: 058
     Dates: start: 20100420

REACTIONS (6)
  - MULTIPLE SCLEROSIS RELAPSE [None]
  - DIZZINESS [None]
  - HYPOAESTHESIA [None]
  - HEADACHE [None]
  - OPTIC NEURITIS [None]
  - INJECTION SITE HAEMATOMA [None]
